FAERS Safety Report 7878378-6 (Version None)
Quarter: 2011Q4

REPORT INFORMATION
  Report Type: 
  Country: None (occurrence: None)
  Receive Date: 20111031
  Receipt Date: 20111017
  Transmission Date: 20120403
  Serious: Yes (Other)
  Sender: FDA-Public Use
  Company Number: US-ACCORD-010827

PATIENT
  Age: 61 Year
  Sex: Male

DRUGS (17)
  1. ATORVASTATIN [Concomitant]
  2. ATENOLOL [Concomitant]
  3. ASPIRIN [Concomitant]
  4. ESOMEPRAZOLE MAGNESIUM [Concomitant]
  5. BUSPIRON (BUSPIRON) [Concomitant]
  6. MYCOPHENOLATE MOFETIL [Concomitant]
  7. FOLIC ACID [Concomitant]
  8. PIPERACILLIN W/TAZOBACTAM (PIPERACILLIN W/TAZOBACTAM) [Concomitant]
  9. METHYLPREDNISOLONE [Concomitant]
  10. PREDNISONE TAB [Concomitant]
  11. BENAZEPRIL HYDROCHLORIDE [Concomitant]
  12. LEVOFLOXACIN [Concomitant]
  13. VANCOMYCIN [Concomitant]
  14. TACROLIMUS [Suspect]
     Indication: RENAL TRANSPLANT
  15. AMLODIPINE [Concomitant]
  16. MINOXIDIL [Concomitant]
  17. MOXIFLOXACIN HCL [Concomitant]

REACTIONS (5)
  - GRAFT DYSFUNCTION [None]
  - POSTERIOR REVERSIBLE ENCEPHALOPATHY SYNDROME [None]
  - DIALYSIS [None]
  - INTERSTITIAL LUNG DISEASE [None]
  - THROMBOTIC MICROANGIOPATHY [None]
